FAERS Safety Report 5327416-3 (Version None)
Quarter: 2007Q2

REPORT INFORMATION
  Report Type: 
  Country: None (occurrence: None)
  Receive Date: 20070517
  Receipt Date: 20070511
  Transmission Date: 20071010
  Serious: Yes (Other)
  Sender: FDA-Public Use
  Company Number: CA-ASTRAZENECA-2007UW03821

PATIENT
  Age: 64 Year
  Sex: Female

DRUGS (1)
  1. SYMBICORT [Suspect]
     Indication: ASTHMA
     Dosage: 200/6; 2 PUFFS BID
     Route: 055
     Dates: start: 20061001

REACTIONS (3)
  - ASTHMA [None]
  - DRUG INEFFECTIVE [None]
  - NEOPLASM [None]
